FAERS Safety Report 19257130 (Version 2)
Quarter: 2021Q2

REPORT INFORMATION
  Report Type: Spontaneous
  Country: US (occurrence: US)
  Receive Date: 20210513
  Receipt Date: 20210615
  Transmission Date: 20210717
  Serious: No
  Sender: FDA-Public Use
  Company Number: US-KALEO, INC.-2021KL000055

PATIENT
  Sex: Male
  Weight: 97.61 kg

DRUGS (1)
  1. AUVI?Q [Suspect]
     Active Substance: EPINEPHRINE

REACTIONS (2)
  - Product distribution issue [Unknown]
  - Device leakage [Unknown]
